FAERS Safety Report 13975476 (Version 1)
Quarter: 2017Q3

REPORT INFORMATION
  Report Type: Spontaneous
  Country: US (occurrence: US)
  Receive Date: 20170915
  Receipt Date: 20170915
  Transmission Date: 20171128
  Serious: No
  Sender: FDA-Public Use
  Company Number: US-PFIZER INC-2017395664

PATIENT
  Age: 64 Year
  Sex: Female

DRUGS (1)
  1. METHOTREXATE SODIUM. [Suspect]
     Active Substance: METHOTREXATE SODIUM
     Dosage: UNK

REACTIONS (9)
  - Musculoskeletal stiffness [Unknown]
  - Hypoaesthesia [Unknown]
  - Arthralgia [Unknown]
  - Ataxia [Unknown]
  - Balance disorder [Unknown]
  - Paraesthesia [Unknown]
  - Crepitations [Unknown]
  - Joint swelling [Unknown]
  - Synovitis [Unknown]
